FAERS Safety Report 5844856-4 (Version None)
Quarter: 2008Q3

REPORT INFORMATION
  Report Type: 
  Country: None (occurrence: None)
  Receive Date: 20080812
  Receipt Date: 20080730
  Transmission Date: 20090109
  Serious: Yes (Other)
  Sender: FDA-Public Use
  Company Number: 2008JP003221

PATIENT
  Age: 57 Year
  Sex: Male

DRUGS (5)
  1. PROGRAF [Suspect]
     Indication: BONE MARROW TRANSPLANT
     Dosage: 0.34 MG, CONTINUOUS, IV DRIP
     Route: 041
     Dates: start: 20080222
  2. METHYLPREDNISOLONE (METHYLPREDNISOLONE) FORMULATION [Concomitant]
  3. ACETAMINOPHEN FORMULATION [Concomitant]
  4. PENTAZOCIN (PENTAZOCINE LACTATE) FORMULATION [Concomitant]
  5. CLONAZEPAM (CLONAZEPAM) FORMULATION [Concomitant]

REACTIONS (3)
  - DRUG INEFFECTIVE [None]
  - ENCEPHALITIS VIRAL [None]
  - POST TRANSPLANT DISTAL LIMB SYNDROME [None]
